FAERS Safety Report 12317737 (Version 1)
Quarter: 2016Q2

REPORT INFORMATION
  Report Type: Spontaneous
  Country: BR (occurrence: BR)
  Receive Date: 20160429
  Receipt Date: 20160429
  Transmission Date: 20160815
  Serious: Yes (Death, Hospitalization)
  Sender: FDA-Public Use
  Company Number: BR-TEVA-654381ISR

PATIENT
  Age: 72 Year
  Sex: Female
  Weight: 62 kg

DRUGS (8)
  1. TEVAOXALI [Suspect]
     Active Substance: OXALIPLATIN
     Indication: PANCREATIC CARCINOMA METASTATIC
     Route: 042
     Dates: start: 20130725
  2. CAMPTOSAR [Suspect]
     Active Substance: IRINOTECAN HYDROCHLORIDE
     Indication: PANCREATIC CARCINOMA METASTATIC
     Route: 042
     Dates: start: 20130725
  3. LEXOTAN [Concomitant]
     Active Substance: BROMAZEPAM
     Dosage: 3 MILLIGRAM DAILY;
     Route: 048
  4. CLEXANE [Concomitant]
     Active Substance: ENOXAPARIN SODIUM
     Dosage: 120 MILLIGRAM DAILY;
     Route: 042
  5. FAULDFLUOR [Suspect]
     Active Substance: FLUOROURACIL
     Indication: PANCREATIC CARCINOMA
     Route: 042
     Dates: start: 20130725
  6. IMOSEC [Concomitant]
     Active Substance: LOPERAMIDE
     Dosage: 2 MILLIGRAM DAILY;
     Route: 048
  7. FAULDFLUOR BI [Suspect]
     Active Substance: FLUOROURACIL
     Indication: PANCREATIC CARCINOMA
     Dosage: INFUSION BAG, FROM DAY 1 TO DAY 3
     Route: 042
     Dates: start: 20130725
  8. OMEPRAZOLE. [Concomitant]
     Active Substance: OMEPRAZOLE
     Dosage: 40 MILLIGRAM DAILY;
     Route: 048

REACTIONS (9)
  - Dehydration [Unknown]
  - Shock [Fatal]
  - Dyspnoea [Fatal]
  - Neutropenia [Fatal]
  - Thrombocytopenia [Unknown]
  - Sepsis [Fatal]
  - Mucosal inflammation [Unknown]
  - Odynophagia [Unknown]
  - Malnutrition [Unknown]

NARRATIVE: CASE EVENT DATE: 20160405
